FAERS Safety Report 20151563 (Version 1)
Quarter: 2021Q4

REPORT INFORMATION
  Report Type: Spontaneous
  Country: US (occurrence: US)
  Receive Date: 20211206
  Receipt Date: 20211206
  Transmission Date: 20220303
  Serious: No
  Sender: FDA-Public Use
  Company Number: US-TEVA-2021-US-1977102

PATIENT
  Sex: Female

DRUGS (4)
  1. NORTRIPTYLINE HYDROCHLORIDE [Suspect]
     Active Substance: NORTRIPTYLINE HYDROCHLORIDE
     Indication: Insomnia
     Dosage: I HAVE BEEN TAKING IT FOR ABOUT 4 OR 5 MONTHS
     Route: 065
  2. NORTRIPTYLINE HYDROCHLORIDE [Suspect]
     Active Substance: NORTRIPTYLINE HYDROCHLORIDE
     Indication: Parkinson^s disease
     Route: 065
  3. NORTRIPTYLINE HYDROCHLORIDE [Suspect]
     Active Substance: NORTRIPTYLINE HYDROCHLORIDE
     Route: 065
     Dates: start: 20211026
  4. NORTRIPTYLINE HYDROCHLORIDE [Suspect]
     Active Substance: NORTRIPTYLINE HYDROCHLORIDE
     Route: 065
     Dates: start: 20211106

REACTIONS (5)
  - Drug ineffective [Unknown]
  - Anxiety [Unknown]
  - Headache [Unknown]
  - Off label use [Unknown]
  - Product use in unapproved indication [Unknown]

NARRATIVE: CASE EVENT DATE: 20210101
